FAERS Safety Report 10071996 (Version 3)
Quarter: 2014Q3

REPORT INFORMATION
  Report Type: Spontaneous
  Country: US (occurrence: None)
  Receive Date: 20140314
  Receipt Date: 20140915
  Transmission Date: 20150326
  Serious: Yes (Hospitalization)
  Sender: FDA-Public Use
  Company Number: US-000950

PATIENT
  Sex: Female

DRUGS (2)
  1. SOLUTIONS FOR PARENTERAL NUTRITION [Concomitant]
     Active Substance: AMINO ACIDS\DEXTROSE\ELECTROLYTES NOS
  2. GATTEX [Suspect]
     Active Substance: TEDUGLUTIDE\WATER
     Indication: SHORT-BOWEL SYNDROME
     Route: 058

REACTIONS (4)
  - Pyrexia [None]
  - Investigation [None]
  - Blood pressure decreased [None]
  - Injection site nodule [None]

NARRATIVE: CASE EVENT DATE: 2014
